FAERS Safety Report 13357303 (Version 1)
Quarter: 2017Q1

REPORT INFORMATION
  Report Type: Spontaneous
  Country: US (occurrence: US)
  Receive Date: 20170322
  Receipt Date: 20170322
  Transmission Date: 20170429
  Serious: Yes (Other)
  Sender: FDA-Public Use
  Company Number: US-BEH-2017078938

PATIENT
  Age: 54 Year
  Sex: Male

DRUGS (3)
  1. MONONINE [Suspect]
     Active Substance: COAGULATION FACTOR IX HUMAN
     Dosage: 1000 IU, UNK
     Route: 042
  2. MONONINE [Suspect]
     Active Substance: COAGULATION FACTOR IX HUMAN
     Dosage: UNK
     Route: 042
     Dates: start: 20170314
  3. MONONINE [Suspect]
     Active Substance: COAGULATION FACTOR IX HUMAN
     Indication: FACTOR VIII DEFICIENCY
     Dosage: 1000 IU, UNK
     Route: 042
     Dates: start: 20110930

REACTIONS (1)
  - Drug effect incomplete [Unknown]

NARRATIVE: CASE EVENT DATE: 20170314
